FAERS Safety Report 13689968 (Version 1)
Quarter: 2017Q2

REPORT INFORMATION
  Report Type: Spontaneous
  Country: US (occurrence: US)
  Receive Date: 20170626
  Receipt Date: 20170626
  Transmission Date: 20170830
  Serious: Yes (Other)
  Sender: FDA-Public Use
  Company Number: US-PFIZER INC-2017271073

PATIENT
  Age: 42 Year
  Sex: Female

DRUGS (4)
  1. NEURONTIN [Suspect]
     Active Substance: GABAPENTIN
     Indication: FEELING ABNORMAL
     Dosage: 400 MG, 3X/DAY
     Route: 048
     Dates: start: 201705
  2. NEURONTIN [Suspect]
     Active Substance: GABAPENTIN
     Indication: HERPES ZOSTER
     Dosage: 800 MG, 3X/DAY
     Route: 048
     Dates: start: 20170417, end: 201705
  3. PRILOSEC [Concomitant]
     Active Substance: OMEPRAZOLE MAGNESIUM
     Indication: DYSPEPSIA
     Dosage: 40 MG, 1X/DAY
  4. BENTYL [Concomitant]
     Active Substance: DICYCLOMINE HYDROCHLORIDE
     Indication: IRRITABLE BOWEL SYNDROME
     Dosage: 10 MG, 3X/DAY

REACTIONS (3)
  - Depression [Not Recovered/Not Resolved]
  - Mood swings [Not Recovered/Not Resolved]
  - Pain [Unknown]

NARRATIVE: CASE EVENT DATE: 201705
